FAERS Safety Report 4732912-3 (Version None)
Quarter: 2005Q3

REPORT INFORMATION
  Report Type: 
  Country: None (occurrence: None)
  Receive Date: 20050803
  Receipt Date: 20050516
  Transmission Date: 20060218
  Serious: No
  Sender: FDA-Public Use
  Company Number: US-GLAXOSMITHKLINE-A0558810A

PATIENT
  Age: 45 Year
  Sex: Male

DRUGS (2)
  1. AVANDAMET [Suspect]
     Route: 048
  2. ALTACE [Concomitant]

REACTIONS (3)
  - NASOPHARYNGITIS [None]
  - PARAESTHESIA [None]
  - RESTLESS LEGS SYNDROME [None]
